FAERS Safety Report 13938706 (Version 1)
Quarter: 2017Q3

REPORT INFORMATION
  Report Type: Report from Study
  Country: None (occurrence: US)
  Receive Date: 20170906
  Receipt Date: 20170906
  Transmission Date: 20171127
  Serious: Yes (Hospitalization, Other)
  Sender: FDA-Public Use
  Company Number: US-ABBVIE-17K-163-1979969-00

PATIENT
  Age: 54 Year
  Sex: Male
  Weight: 94.43 kg

DRUGS (1)
  1. HUMIRA [Suspect]
     Active Substance: ADALIMUMAB
     Indication: COLITIS ULCERATIVE
     Route: 058
     Dates: start: 2016, end: 2017

REACTIONS (10)
  - Colitis [Recovering/Resolving]
  - Tachycardia [Recovered/Resolved]
  - Hypotension [Recovered/Resolved]
  - Gastric ulcer perforation [Recovered/Resolved]
  - Abdominal distension [Recovered/Resolved]
  - Nausea [Recovered/Resolved]
  - Colitis ulcerative [Not Recovered/Not Resolved]
  - Pneumoperitoneum [Recovered/Resolved]
  - Drug ineffective [Unknown]
  - White blood cell count increased [Recovered/Resolved]

NARRATIVE: CASE EVENT DATE: 2017
